FAERS Safety Report 19423711 (Version 5)
Quarter: 2021Q3

REPORT INFORMATION
  Report Type: Spontaneous
  Country: DE (occurrence: DE)
  Receive Date: 20210616
  Receipt Date: 20210827
  Transmission Date: 20211014
  Serious: Yes (Other)
  Sender: FDA-Public Use
  Company Number: DE-ALXN-A202106796

PATIENT
  Age: 41 Year
  Sex: Female

DRUGS (7)
  1. SOLIRIS [Suspect]
     Active Substance: ECULIZUMAB
     Indication: ATYPICAL HAEMOLYTIC URAEMIC SYNDROME
     Dosage: UNK UNK, Q2W
     Route: 065
     Dates: start: 2014
  2. ULTOMIRIS [Suspect]
     Active Substance: RAVULIZUMAB-CWVZ
     Indication: ATYPICAL HAEMOLYTIC URAEMIC SYNDROME
     Dosage: UNK
     Route: 065
     Dates: start: 2020
  3. SOLIRIS [Suspect]
     Active Substance: ECULIZUMAB
     Dosage: UNK (SWITCH TO ULTOMIRIS IN 2020, FREQUENCY AND DOSAGE NOT SPECIFIED)
     Route: 065
     Dates: end: 2020
  4. ULTOMIRIS [Suspect]
     Active Substance: RAVULIZUMAB-CWVZ
     Dosage: UNK
     Route: 065
     Dates: start: 2021
  5. SOLIRIS [Suspect]
     Active Substance: ECULIZUMAB
     Dosage: UNK (SWITCH BACK TO SOLIRIS FOR A DURATION OF 4 WEEKS (KIDNEY TRANSPLANT))
     Route: 065
     Dates: start: 2021
  6. SOLIRIS [Suspect]
     Active Substance: ECULIZUMAB
     Dosage: UNK, AGAIN SWITCH BACK TO ULTOMIRIS (AFTER KIDNEY TRANSPLANT)
     Route: 065
     Dates: end: 2021
  7. SOLIRIS [Suspect]
     Active Substance: ECULIZUMAB
     Dosage: UNK, SWITCHED BACK TO SOLIRIS
     Route: 065

REACTIONS (1)
  - Renal transplant [Unknown]

NARRATIVE: CASE EVENT DATE: 20210521
